FAERS Safety Report 8553638-4 (Version None)
Quarter: 2012Q3

REPORT INFORMATION
  Report Type: 
  Country: None (occurrence: None)
  Receive Date: 20120725
  Receipt Date: 20120725
  Transmission Date: 20120928
  Serious: Yes (Other)
  Sender: FDA-Public Use
  Company Number: None

PATIENT
  Age: 84 Year
  Sex: Female

DRUGS (1)
  1. XELODA [Suspect]
     Indication: BILE DUCT CANCER
     Dosage: 1000 MG BID PO
     Route: 048
     Dates: start: 20120626

REACTIONS (3)
  - LIMB DISCOMFORT [None]
  - SUNBURN [None]
  - RASH [None]
